FAERS Safety Report 10416357 (Version 1)
Quarter: 2014Q3

REPORT INFORMATION
  Report Type: Spontaneous
  Country: US (occurrence: US)
  Receive Date: 20140828
  Receipt Date: 20140828
  Transmission Date: 20150326
  Serious: No
  Sender: FDA-Public Use
  Company Number: US-GILEAD-2014-0113028

PATIENT
  Age: 49 Year
  Sex: Female

DRUGS (2)
  1. SOVALDI [Suspect]
     Active Substance: SOFOSBUVIR
     Indication: HEPATITIS C
     Dosage: 400 MG, QD
     Route: 048
     Dates: start: 201406
  2. RIBASPHERE [Concomitant]
     Active Substance: RIBAVIRIN

REACTIONS (3)
  - Musculoskeletal stiffness [Unknown]
  - Bursitis [Unknown]
  - Pain [Unknown]

NARRATIVE: CASE EVENT DATE: 2014
